FAERS Safety Report 16829677 (Version 1)
Quarter: 2019Q3

REPORT INFORMATION
  Report Type: Spontaneous
  Country: GR (occurrence: GR)
  Receive Date: 20190919
  Receipt Date: 20190919
  Transmission Date: 20191005
  Serious: Yes (Other)
  Sender: FDA-Public Use
  Company Number: GR-MYLANLABS-2019M1087403

PATIENT
  Age: 35 Year
  Sex: Female

DRUGS (1)
  1. AMLODIPINE MYLAN [Suspect]
     Active Substance: AMLODIPINE BESYLATE
     Indication: PRE-ECLAMPSIA
     Dosage: UNK

REACTIONS (5)
  - Maternal exposure during pregnancy [Recovered/Resolved]
  - Abdominal pain [Unknown]
  - Premature delivery [Recovered/Resolved]
  - Amniotic cavity infection [Unknown]
  - Pyrexia [Unknown]
